FAERS Safety Report 19093647 (Version 2)
Quarter: 2021Q2

REPORT INFORMATION
  Report Type: Spontaneous
  Country: BR (occurrence: BR)
  Receive Date: 20210405
  Receipt Date: 20210508
  Transmission Date: 20210717
  Serious: No
  Sender: FDA-Public Use
  Company Number: BR-LUPIN PHARMACEUTICALS INC.-2021-04071

PATIENT
  Age: 28 Year
  Sex: Female

DRUGS (2)
  1. HYDROXYCHLOROQUINE [Suspect]
     Active Substance: HYDROXYCHLOROQUINE
     Indication: AUTOINFLAMMATORY DISEASE
     Dosage: 400 MILLIGRAM, QD
     Route: 065
     Dates: start: 2020
  2. VITAMIN D3 [Suspect]
     Active Substance: CHOLECALCIFEROL
     Indication: AUTOINFLAMMATORY DISEASE
     Dosage: 20000 INTERNATIONAL UNIT, QD
     Route: 065
     Dates: start: 2020

REACTIONS (2)
  - Exposure during pregnancy [Unknown]
  - Off label use [Unknown]

NARRATIVE: CASE EVENT DATE: 2020
